FAERS Safety Report 7669225-6 (Version None)
Quarter: 2011Q3

REPORT INFORMATION
  Report Type: 
  Country: None (occurrence: None)
  Receive Date: 20110808
  Receipt Date: 20110726
  Transmission Date: 20111222
  Serious: Yes (Other)
  Sender: FDA-Public Use
  Company Number: PHHO2011AU12738

PATIENT
  Sex: Male
  Weight: 55 kg

DRUGS (1)
  1. CERTICAN [Suspect]
     Indication: LUNG TRANSPLANT
     Dosage: 2 MG, UNK
     Route: 048
     Dates: start: 20090130, end: 20110401

REACTIONS (2)
  - ALVEOLAR PROTEINOSIS [None]
  - PULMONARY ALVEOLAR HAEMORRHAGE [None]
